FAERS Safety Report 6161893-3 (Version None)
Quarter: 2009Q2

REPORT INFORMATION
  Report Type: 
  Country: None (occurrence: None)
  Receive Date: 20090421
  Receipt Date: 20090415
  Transmission Date: 20091009
  Serious: Yes (Hospitalization)
  Sender: FDA-Public Use
  Company Number: B0569879A

PATIENT
  Sex: Female
  Weight: 65 kg

DRUGS (2)
  1. TOPOTECAN [Suspect]
     Dosage: 1.29MG CYCLIC
     Route: 042
     Dates: start: 20090401
  2. CARBOPLATIN [Suspect]
     Dosage: 630MG CYCLIC
     Route: 042
     Dates: start: 20090403

REACTIONS (1)
  - PULMONARY OEDEMA [None]
